FAERS Safety Report 8453421-4 (Version None)
Quarter: 2012Q2

REPORT INFORMATION
  Report Type: 
  Country: None (occurrence: None)
  Receive Date: 20120620
  Receipt Date: 20120520
  Transmission Date: 20120825
  Serious: No
  Sender: FDA-Public Use
  Company Number: US-VERTEX PHARMACEUTICALS INC.-AE-2012-007354

PATIENT
  Sex: Male
  Weight: 77.18 kg

DRUGS (12)
  1. PEGASYS [Concomitant]
     Indication: HEPATITIS C
     Route: 058
     Dates: start: 20120507
  2. HYDROCHLOROTHIAZIDE [Concomitant]
     Indication: HYPERTENSION
     Route: 048
  3. PROZAC [Concomitant]
     Route: 048
  4. INCIVEK [Suspect]
     Indication: HEPATITIS C
     Route: 048
     Dates: start: 20120507
  5. RIBAVIRIN [Concomitant]
     Indication: HEPATITIS C
     Route: 048
     Dates: start: 20120507
  6. LISINOPRIL [Concomitant]
     Indication: HYPERTENSION
     Route: 048
  7. NAPROSYN [Concomitant]
     Route: 048
  8. NEURONTIN [Concomitant]
     Route: 048
  9. SUCRALFATE [Concomitant]
     Route: 048
  10. CLONIDINE [Concomitant]
     Indication: HYPERTENSION
     Route: 048
  11. FLEXERIL [Concomitant]
     Route: 048
  12. ATRIPLA [Concomitant]
     Route: 048

REACTIONS (4)
  - INSOMNIA [None]
  - DYSPNOEA [None]
  - ABDOMINAL DISTENSION [None]
  - CONSTIPATION [None]
